FAERS Safety Report 17241423 (Version 2)
Quarter: 2022Q4

REPORT INFORMATION
  Report Type: Spontaneous
  Country: DE (occurrence: DE)
  Receive Date: 20200107
  Receipt Date: 20221027
  Transmission Date: 20230112
  Serious: Yes (Hospitalization)
  Sender: FDA-Public Use
  Company Number: DE-ADRED-04131-01

PATIENT
  Age: 65 Year
  Sex: Female

DRUGS (4)
  1. AMLODIPINE [Suspect]
     Active Substance: AMLODIPINE BESYLATE
     Indication: Product used for unknown indication
     Dosage: 5 MILLIGRAM DAILY; 5 MG, 1-0-0-0
     Route: 048
  2. CANDESARTAN CILEXETIL AND HYDROCHLOROTHIAZIDE [Suspect]
     Active Substance: CANDESARTAN CILEXETIL\HYDROCHLOROTHIAZIDE
     Indication: Product used for unknown indication
     Dosage: 1 DOSAGE FORMS DAILY; 8|12.5 MG, 1-0-0-0
     Route: 048
  3. BISOPROLOL [Suspect]
     Active Substance: BISOPROLOL
     Indication: Product used for unknown indication
     Dosage: .5 DOSAGE FORMS DAILY; 5 MG, 0.5-0-0-0
     Route: 048
  4. LEVOTHYROXINE SODIUM [Concomitant]
     Active Substance: LEVOTHYROXINE SODIUM
     Indication: Product used for unknown indication
     Dosage: 50 MICROGRAM DAILY; 50 MICROGRAM, 1-0-0-0 , LEVOTHYROXIN-NATRIUM
     Route: 048

REACTIONS (4)
  - Hypotension [Recovered/Resolved]
  - Presyncope [Recovered/Resolved]
  - Dizziness [Recovered/Resolved]
  - Product prescribing error [Recovered/Resolved]
